FAERS Safety Report 5485526-4 (Version None)
Quarter: 2007Q4

REPORT INFORMATION
  Report Type: 
  Country: None (occurrence: None)
  Receive Date: 20071011
  Receipt Date: 20070924
  Transmission Date: 20080405
  Serious: Yes (Other)
  Sender: FDA-Public Use
  Company Number: 2007SI009095

PATIENT
  Age: 4 Year
  Sex: Male

DRUGS (4)
  1. ACYCLOVIR [Suspect]
     Indication: ENCEPHALITIS HERPES
  2. IMMUNE GLOBULIN (HUMAN) [Suspect]
     Indication: ENCEPHALITIS HERPES
  3. PHENOBARBITAL TAB [Suspect]
     Indication: ENCEPHALITIS HERPES
  4. TIAPRIDEX (TIAPRIDE HYDROCHLORIDE) [Suspect]
     Indication: ENCEPHALITIS HERPES

REACTIONS (7)
  - DEPRESSED LEVEL OF CONSCIOUSNESS [None]
  - DISTURBANCE IN ATTENTION [None]
  - DRUG INEFFECTIVE [None]
  - NEUROLOGICAL SYMPTOM [None]
  - PYREXIA [None]
  - SPEECH DISORDER [None]
  - STUPOR [None]
